FAERS Safety Report 7574274-2 (Version None)
Quarter: 2011Q2

REPORT INFORMATION
  Report Type: 
  Country: None (occurrence: None)
  Receive Date: 20110627
  Receipt Date: 20110415
  Transmission Date: 20111010
  Serious: Yes (Other)
  Sender: FDA-Public Use
  Company Number: US-BAYER-2011-033973

PATIENT
  Age: 46 Year
  Sex: Female
  Weight: 58.503 kg

DRUGS (7)
  1. AMOXICILLIN [Concomitant]
     Dosage: 125 MG, UNK
     Route: 048
  2. PERCOCET [Concomitant]
     Route: 048
  3. YASMIN [Suspect]
     Indication: PRODUCT USED FOR UNKNOWN INDICATION
     Dosage: UNK
     Dates: start: 20050101, end: 20081001
  4. NEXIUM [Concomitant]
     Dosage: 40 MG, UNK
     Route: 048
  5. DROSPIRENONE AND ETHINYL ESTRADIOL [Suspect]
     Indication: CONTRACEPTION
     Dosage: UNK
     Route: 048
     Dates: start: 20081101, end: 20081201
  6. YASMIN [Suspect]
     Dosage: UNK
     Dates: start: 20090101, end: 20091001
  7. LEVAQUIN [Concomitant]
     Route: 048

REACTIONS (5)
  - INJURY [None]
  - CHOLECYSTITIS [None]
  - ABDOMINAL PAIN UPPER [None]
  - GALLBLADDER INJURY [None]
  - PAIN [None]
